FAERS Safety Report 4764380-X (Version None)
Quarter: 2005Q3

REPORT INFORMATION
  Report Type: 
  Country: None (occurrence: None)
  Receive Date: 20050907
  Receipt Date: 20050830
  Transmission Date: 20060218
  Serious: Yes (Death, Life-Threatening, Hospitalization)
  Sender: FDA-Public Use
  Company Number: EM2005-0237

PATIENT
  Age: 43 Year
  Sex: Male
  Weight: 68 kg

DRUGS (16)
  1. MACROLIN [Suspect]
     Indication: HIV INFECTION
     Dosage: 4.5 MIU, BID, SUBCUTANEOUS
     Route: 058
     Dates: start: 20041122, end: 20041126
  2. MACROLIN [Suspect]
     Indication: HIV INFECTION
     Dosage: 4.5 MIU, BID, SUBCUTANEOUS
     Route: 058
     Dates: start: 20041216, end: 20041220
  3. MACROLIN [Suspect]
     Indication: HIV INFECTION
     Dosage: 4.5 MIU, BID, SUBCUTANEOUS
     Route: 058
     Dates: start: 20050131, end: 20050204
  4. MACROLIN [Suspect]
     Indication: HIV INFECTION
     Dosage: 4.5 MIU, BID, SUBCUTANEOUS
     Route: 058
     Dates: start: 20050314, end: 20050318
  5. VIDEX [Concomitant]
  6. ZIAGEN [Concomitant]
  7. TENOFOVIR (TENOFOVIR) [Concomitant]
  8. EPIVIR [Concomitant]
  9. KALETRA [Concomitant]
  10. VIREAD [Concomitant]
  11. 3TC (LAMIVUDINE) [Concomitant]
  12. BACTRIM [Concomitant]
  13. LEDERFOLIN (CALCIUM FOLINATE) [Concomitant]
  14. OMEPRAZOLE [Concomitant]
  15. IMODIUM [Concomitant]
  16. POTASSIUM GLUCONATE (POTASSIUM GLUCONATE) [Concomitant]

REACTIONS (9)
  - ANTICONVULSANT DRUG LEVEL DECREASED [None]
  - BRAIN MASS [None]
  - BRAIN OEDEMA [None]
  - CENTRAL NERVOUS SYSTEM LYMPHOMA [None]
  - CEREBRAL TOXOPLASMOSIS [None]
  - COMA [None]
  - GRAND MAL CONVULSION [None]
  - LOSS OF CONSCIOUSNESS [None]
  - LUNG DISORDER [None]
